FAERS Safety Report 14963397 (Version 4)
Quarter: 2019Q1

REPORT INFORMATION
  Report Type: Spontaneous
  Country: AU (occurrence: AU)
  Receive Date: 20180601
  Receipt Date: 20190318
  Transmission Date: 20190417
  Serious: Yes (Other)
  Sender: FDA-Public Use
  Company Number: AU-MYLANLABS-2018M1038086

PATIENT
  Age: 24 Year
  Sex: Male

DRUGS (17)
  1. CLOZAPINE. [Suspect]
     Active Substance: CLOZAPINE
     Dosage: 50 MILLIGRAM, NOON
  2. HALOPERIDOL. [Interacting]
     Active Substance: HALOPERIDOL
     Dosage: 30 MILLIGRAM, PRN
  3. CLOZAPINE. [Suspect]
     Active Substance: CLOZAPINE
     Dosage: 100 MILLIGRAM, NOON
  4. CLOZAPINE. [Suspect]
     Active Substance: CLOZAPINE
     Dosage: 350 MILLIGRAM, QD
  5. VALPROIC ACID. [Interacting]
     Active Substance: VALPROIC ACID
     Indication: SEIZURE
     Dosage: 1500 MILLIGRAM, QD
  6. CLOZAPINE. [Suspect]
     Active Substance: CLOZAPINE
     Indication: SCHIZOPHRENIA
     Dosage: 50 MILLIGRAM, NOON
  7. HALOPERIDOL. [Suspect]
     Active Substance: HALOPERIDOL
     Indication: SCHIZOPHRENIA
     Dosage: UNK UNK, 4XW
  8. MOVICOL [Concomitant]
     Active Substance: POLYETHYLENE GLYCOL 3350\POTASSIUM CHLORIDE\SODIUM BICARBONATE\SODIUM CHLORIDE
     Indication: CONSTIPATION
     Dosage: UNK
  9. VALPROIC ACID. [Interacting]
     Active Substance: VALPROIC ACID
     Dosage: 2000 MILLIGRAM, QD
  10. CLOZAPINE. [Suspect]
     Active Substance: CLOZAPINE
     Dosage: 650 MILLIGRAM, PM
  11. VALPROIC ACID. [Interacting]
     Active Substance: VALPROIC ACID
     Indication: SCHIZOPHRENIA
     Dosage: 1000 MILLIGRAM, QD
  12. CLOZAPINE. [Suspect]
     Active Substance: CLOZAPINE
     Dosage: 650 MILLIGRAM, QD
  13. HALOPERIDOL. [Interacting]
     Active Substance: HALOPERIDOL
     Indication: SCHIZOPHRENIA
     Dosage: 200 MILLIGRAM, Q28D
  14. CLOZAPINE. [Suspect]
     Active Substance: CLOZAPINE
     Dosage: 650 MILLIGRAM, PM
  15. CLOZAPINE. [Suspect]
     Active Substance: CLOZAPINE
     Dosage: 425 MILLIGRAM, QD
  16. VALPROIC ACID. [Interacting]
     Active Substance: VALPROIC ACID
     Dosage: 1000 MILLIGRAM
  17. CLOZAPINE. [Suspect]
     Active Substance: CLOZAPINE
     Dosage: 650 MILLIGRAM, PM

REACTIONS (8)
  - Drug interaction [Recovered/Resolved]
  - Toxicity to various agents [Recovered/Resolved]
  - Generalised tonic-clonic seizure [Recovered/Resolved]
  - Salivary hypersecretion [Recovered/Resolved]
  - Dysarthria [Recovered/Resolved]
  - Antipsychotic drug level increased [Recovered/Resolved]
  - Somnolence [Recovered/Resolved]
  - Muscle contractions involuntary [Recovered/Resolved]
